FAERS Safety Report 5462925-8 (Version None)
Quarter: 2007Q3

REPORT INFORMATION
  Report Type: 
  Country: None (occurrence: None)
  Receive Date: 20070920
  Receipt Date: 20070913
  Transmission Date: 20080115
  Serious: Yes (Hospitalization)
  Sender: FDA-Public Use
  Company Number: SK-AVENTIS-200718050GDDC

PATIENT
  Age: 64 Year
  Sex: Female

DRUGS (4)
  1. ARAVA [Suspect]
     Indication: RHEUMATOID ARTHRITIS
     Dosage: DOSE: LOADING DOSE UNKNOWN
     Dates: start: 20070101
  2. ARAVA [Suspect]
     Route: 048
     Dates: start: 20070101, end: 20070601
  3. ANTIEPILEPTICS [Concomitant]
     Indication: EPILEPSY
     Dosage: DOSE: UNK
  4. CORTICOSTEROIDS [Concomitant]
     Dosage: DOSE: UNK

REACTIONS (3)
  - ANAEMIA [None]
  - CACHEXIA [None]
  - HYPOPROTEINAEMIA [None]
